FAERS Safety Report 21132093 (Version 5)
Quarter: 2022Q3

REPORT INFORMATION
  Report Type: Spontaneous
  Country: US (occurrence: US)
  Receive Date: 20220726
  Receipt Date: 20220923
  Transmission Date: 20221027
  Serious: No
  Sender: FDA-Public Use
  Company Number: US-PFIZER INC-202200950087

PATIENT
  Age: 9 Year
  Sex: Female

DRUGS (3)
  1. GENOTROPIN [Suspect]
     Active Substance: SOMATROPIN
     Indication: Growth hormone deficiency
     Dosage: 1 MG, ALTERNATE DAY (ALTERNATES ONE NIGHT 1.0 MG AND THE OTHER NIGHT 1.2 MG AND ALTERNATES THAT)
     Dates: start: 2018
  2. GENOTROPIN [Suspect]
     Active Substance: SOMATROPIN
     Indication: Short stature
     Dosage: 1.2 MG, ALTERNATE DAY (ALTERNATES ONE NIGHT 1.0 MG AND THE OTHER NIGHT 1.2 MG AND ALTERNATES THAT)
     Dates: start: 2018
  3. GENOTROPIN [Suspect]
     Active Substance: SOMATROPIN
     Indication: Turner^s syndrome
     Dosage: UNK, DAILY

REACTIONS (9)
  - Drug dose omission by device [Unknown]
  - Device use issue [Unknown]
  - Device difficult to use [Unknown]
  - Device physical property issue [Unknown]
  - Product dose omission issue [Unknown]
  - Behaviour disorder [Unknown]
  - Aggression [Unknown]
  - Insomnia [Unknown]
  - Emotional disorder [Unknown]

NARRATIVE: CASE EVENT DATE: 20220101
